FAERS Safety Report 6239758-8 (Version None)
Quarter: 2009Q2

REPORT INFORMATION
  Report Type: 
  Country: None (occurrence: None)
  Receive Date: 20090619
  Receipt Date: 20090611
  Transmission Date: 20091009
  Serious: Yes (Other)
  Sender: FDA-Public Use
  Company Number: 297749

PATIENT
  Age: 13 Year
  Sex: Female

DRUGS (20)
  1. PROPROFOL [Suspect]
     Indication: STATUS EPILEPTICUS
     Dosage: 100 MG/H [2 MG/ (KG H)]
  2. TPN [Suspect]
     Indication: PARENTERAL NUTRITION
     Dosage: PARENTERAL
     Route: 051
  3. ANALGESICS [Concomitant]
  4. COLD RELIEF /00273101/) [Concomitant]
  5. AMOXICILLIN [Concomitant]
  6. ERYTHROMYCIN [Concomitant]
  7. CEFTRIAXONE [Concomitant]
  8. DIAZEPAM [Concomitant]
  9. PHENYTOIN [Concomitant]
  10. LORAZEPAM [Concomitant]
  11. PHENOBARBITAL [Concomitant]
  12. VALPROIC ACID [Concomitant]
  13. MIDAZOLAM HCL [Concomitant]
  14. PENTOBARBITAL CAP [Concomitant]
  15. CEFOTAXIME [Concomitant]
  16. AMPICILLIN [Concomitant]
  17. ACYCLOVIR [Concomitant]
  18. TETRACYCLINE [Concomitant]
  19. CORTICOSTROIDS [Concomitant]
  20. GANCICLOVIR [Concomitant]

REACTIONS (6)
  - AMMONIA INCREASED [None]
  - BRAIN OEDEMA [None]
  - ENCEPHALITIS [None]
  - HAEMORRHAGE [None]
  - HEPATIC STEATOSIS [None]
  - HEPATOMEGALY [None]
